FAERS Safety Report 25937577 (Version 2)
Quarter: 2025Q4

REPORT INFORMATION
  Report Type: Spontaneous
  Country: EU (occurrence: EU)
  Receive Date: 20251018
  Receipt Date: 20251229
  Transmission Date: 20260118
  Serious: Yes (Hospitalization, Other)
  Sender: IPSEN BIOPHARMACEUTICALS, INC.
  Company Number: EU-SERVIER-S25014709

PATIENT
  Age: 59 Year
  Sex: Male
  Weight: 103 kg

DRUGS (4)
  1. ONIVYDE [Suspect]
     Active Substance: IRINOTECAN HYDROCHLORIDE
     Indication: Pancreatic carcinoma metastatic
     Dosage: 50 MG/M2, EVERY 2 WEEKS
     Dates: start: 202503, end: 202508
  2. FLUOROURACIL [Concomitant]
     Active Substance: FLUOROURACIL
     Indication: Pancreatic carcinoma metastatic
     Dosage: 2400 MG/M2, EVERY 2 WEEKS
     Dates: start: 202503, end: 202508
  3. LEUCOVORIN [Concomitant]
     Active Substance: LEUCOVORIN\LEUCOVORIN CALCIUM
     Indication: Pancreatic carcinoma metastatic
     Dosage: 400 MG/M2, EVERY 2 WEEKS
     Dates: start: 202503, end: 202508
  4. OXALIPLATIN [Concomitant]
     Active Substance: OXALIPLATIN
     Indication: Pancreatic carcinoma metastatic
     Dosage: 60 MG/M2, EVERY 2 WEEKS
     Dates: start: 202503, end: 202508

REACTIONS (4)
  - Urinary tract infection enterococcal [Recovered/Resolved]
  - Clostridium difficile colitis [Recovered/Resolved]
  - Diarrhoea [Recovered/Resolved]
  - Thrombocytopenia [Recovered/Resolved]

NARRATIVE: CASE EVENT DATE: 20250301
